FAERS Safety Report 9248348 (Version 4)
Quarter: 2013Q4

REPORT INFORMATION
  Report Type: Spontaneous
  Country: BR (occurrence: BR)
  Receive Date: 20130423
  Receipt Date: 20131126
  Transmission Date: 20140711
  Serious: Yes (Other)
  Sender: FDA-Public Use
  Company Number: BR-AMGEN-BRASP2013027753

PATIENT
  Age: 31 Year
  Sex: Female
  Weight: 85 kg

DRUGS (7)
  1. ENBREL [Suspect]
     Indication: RHEUMATOID ARTHRITIS
     Dosage: 50 MG, WEEKLY
     Route: 058
     Dates: start: 200912
  2. ENBREL [Suspect]
     Dosage: 50 MG, QWK
     Route: 058
     Dates: start: 201110, end: 2012
  3. ENBREL [Suspect]
     Dosage: UNK
     Route: 065
     Dates: start: 201302, end: 201305
  4. ENBREL [Suspect]
     Dosage: 50 MG, QWK
     Route: 058
     Dates: start: 201303
  5. DICLOFENAC [Concomitant]
     Indication: PAIN
     Dosage: FROM 4 TO 7 TABLETS
  6. OMEPRAZOLE [Concomitant]
     Dosage: 80 MG, 1X/DAY(4 TABLETS OF 20 MG DAILY)
  7. QLAIRA [Concomitant]
     Indication: CONTRACEPTION
     Dosage: UNK

REACTIONS (5)
  - Feeding disorder [Unknown]
  - Weight decreased [Unknown]
  - Gastric disorder [Unknown]
  - Gait disturbance [Recovered/Resolved]
  - Drug ineffective [Unknown]
